FAERS Safety Report 8007785-6 (Version None)
Quarter: 2011Q4

REPORT INFORMATION
  Report Type: 
  Country: None (occurrence: None)
  Receive Date: 20111227
  Receipt Date: 20110809
  Transmission Date: 20120403
  Serious: No
  Sender: FDA-Public Use
  Company Number: US-ABBOTT-11P-163-0844957-00

PATIENT
  Sex: Male
  Weight: 77.18 kg

DRUGS (4)
  1. PRAVASTATIN [Concomitant]
     Indication: BLOOD CHOLESTEROL INCREASED
  2. FISH OIL [Concomitant]
     Indication: CARDIOVASCULAR EVENT PROPHYLAXIS
  3. LUPRON DEPOT [Suspect]
     Indication: PROSTATE CANCER
     Dates: start: 20101201
  4. GLUCOSAMINE [Concomitant]
     Indication: PROPHYLAXIS

REACTIONS (3)
  - ORAL CANDIDIASIS [None]
  - GLOSSITIS [None]
  - TONGUE DISORDER [None]
